FAERS Safety Report 9372576 (Version 1)
Quarter: 2013Q2

REPORT INFORMATION
  Report Type: Spontaneous
  Country: US (occurrence: US)
  Receive Date: 20130627
  Receipt Date: 20130627
  Transmission Date: 20140414
  Serious: No
  Sender: FDA-Public Use
  Company Number: US-PFIZER INC-2013191136

PATIENT
  Age: 3 Year
  Sex: Male
  Weight: 13.61 kg

DRUGS (2)
  1. SOLU-MEDROL [Suspect]
     Indication: ECZEMA
     Dosage: 30 MG PER KILOGRAM FOR 3 DAYS IN A MONTH UP TILL 3 MONTHS
     Dates: start: 20130618
  2. METHOTREXATE [Concomitant]
     Dosage: UNK
     Dates: end: 20130612

REACTIONS (2)
  - Erythema [Recovered/Resolved]
  - Skin warm [Recovered/Resolved]
